FAERS Safety Report 9606593 (Version 1)
Quarter: 2013Q4

REPORT INFORMATION
  Report Type: Spontaneous
  Country: US (occurrence: US)
  Receive Date: 20131008
  Receipt Date: 20131008
  Transmission Date: 20140711
  Serious: No
  Sender: FDA-Public Use
  Company Number: US-AMGEN-USASP2013057777

PATIENT
  Age: 74 Year
  Sex: Female

DRUGS (1)
  1. PROLIA [Suspect]
     Indication: OSTEOPOROSIS POSTMENOPAUSAL
     Dosage: UNK
     Route: 065
     Dates: start: 201301

REACTIONS (10)
  - Bursitis [Unknown]
  - Gait disturbance [Unknown]
  - Impaired driving ability [Unknown]
  - Mobility decreased [Unknown]
  - Sleep disorder [Unknown]
  - Groin pain [Unknown]
  - Arthritis [Unknown]
  - Arthralgia [Unknown]
  - Back pain [Unknown]
  - Pain in extremity [Unknown]
